FAERS Safety Report 18456799 (Version 1)
Quarter: 2020Q4

REPORT INFORMATION
  Report Type: Spontaneous
  Country: CA (occurrence: CA)
  Receive Date: 20201103
  Receipt Date: 20201103
  Transmission Date: 20210114
  Serious: Yes (Death, Hospitalization, Other)
  Sender: FDA-Public Use
  Company Number: CA-JNJFOC-20201047351

PATIENT
  Age: 66 Year
  Sex: Female

DRUGS (5)
  1. MUPIROCIN. [Concomitant]
     Active Substance: MUPIROCIN
  2. REMICADE [Suspect]
     Active Substance: INFLIXIMAB
     Indication: CROHN^S DISEASE
     Route: 042
  3. RIFAMPICIN [Concomitant]
     Active Substance: RIFAMPIN
     Indication: LOCALISED INFECTION
  4. PREDNISONE. [Concomitant]
     Active Substance: PREDNISONE
  5. DESOXIMETASONE. [Concomitant]
     Active Substance: DESOXIMETASONE

REACTIONS (5)
  - Death [Fatal]
  - Pneumonia [Fatal]
  - Pneumoperitoneum [Fatal]
  - Large intestine perforation [Fatal]
  - Heart rate decreased [Fatal]
